FAERS Safety Report 13149465 (Version 1)
Quarter: 2017Q1

REPORT INFORMATION
  Report Type: Spontaneous
  Country: US (occurrence: US)
  Receive Date: 20170125
  Receipt Date: 20170125
  Transmission Date: 20170428
  Serious: Yes (Hospitalization, Other)
  Sender: FDA-Public Use
  Company Number: US-ELI_LILLY_AND_COMPANY-US201701008229

PATIENT
  Age: 66 Year
  Sex: Male

DRUGS (3)
  1. OLANZAPINE. [Suspect]
     Active Substance: OLANZAPINE
     Indication: SCHIZOPHRENIA
     Dosage: 30 MG, UNK
     Route: 065
  2. OLANZAPINE. [Suspect]
     Active Substance: OLANZAPINE
     Dosage: 40 MG, QD
     Route: 065
  3. CITALOPRAM [Concomitant]
     Active Substance: CITALOPRAM HYDROBROMIDE
     Indication: SCHIZOPHRENIA
     Dosage: 30 MG, QD
     Route: 065

REACTIONS (5)
  - Agitation [Unknown]
  - Overdose [Unknown]
  - Anxiety [Unknown]
  - Tardive dyskinesia [Recovered/Resolved]
  - Psychotic disorder [Recovered/Resolved]
